FAERS Safety Report 5865157-4 (Version None)
Quarter: 2008Q3

REPORT INFORMATION
  Report Type: 
  Country: None (occurrence: None)
  Receive Date: 20080829
  Receipt Date: 20080822
  Transmission Date: 20090109
  Serious: Yes (Other)
  Sender: FDA-Public Use
  Company Number: A0745065A

PATIENT
  Age: 44 Year
  Sex: Female
  Weight: 109.1 kg

DRUGS (2)
  1. AVANDIA [Suspect]
     Route: 048
     Dates: start: 20000622, end: 20061026
  2. AVANDARYL [Suspect]
     Route: 048
     Dates: start: 20070115, end: 20070215

REACTIONS (10)
  - AMNESIA [None]
  - ANXIETY DISORDER [None]
  - CARDIAC FAILURE CONGESTIVE [None]
  - DIABETIC NEUROPATHY [None]
  - FLUID RETENTION [None]
  - HEART RATE IRREGULAR [None]
  - HYPERTENSION [None]
  - INSULIN-REQUIRING TYPE 2 DIABETES MELLITUS [None]
  - OBESITY [None]
  - SLEEP APNOEA SYNDROME [None]
